FAERS Safety Report 24704783 (Version 1)
Quarter: 2024Q4

REPORT INFORMATION
  Report Type: Spontaneous
  Country: US (occurrence: US)
  Receive Date: 20241206
  Receipt Date: 20241206
  Transmission Date: 20250115
  Serious: No
  Sender: APOTEX
  Company Number: US-APOTEX-2024AP018422

PATIENT

DRUGS (1)
  1. BUSULFAN [Suspect]
     Active Substance: BUSULFAN
     Indication: Chemotherapy
     Dosage: UNK
     Route: 065

REACTIONS (1)
  - Toxic erythema of chemotherapy [Unknown]
